FAERS Safety Report 16458091 (Version 2)
Quarter: 2019Q3

REPORT INFORMATION
  Report Type: Report from Study
  Country: US (occurrence: US)
  Receive Date: 20190620
  Receipt Date: 20190718
  Transmission Date: 20191004
  Serious: Yes (Hospitalization, Other)
  Sender: FDA-Public Use
  Company Number: US-BAYER-2019-097249

PATIENT
  Age: 52 Year
  Sex: Female

DRUGS (3)
  1. STIVARGA [Suspect]
     Active Substance: REGORAFENIB
     Indication: COLORECTAL CANCER
     Dosage: DAILY DOSE 120MG
     Route: 048
     Dates: start: 20190622
  2. STIVARGA [Suspect]
     Active Substance: REGORAFENIB
     Indication: COLORECTAL CANCER
     Dosage: DAILY DOSE 80MG
     Route: 048
     Dates: start: 2019, end: 201907
  3. STIVARGA [Suspect]
     Active Substance: REGORAFENIB
     Indication: COLORECTAL CANCER
     Dosage: DAILY DOSE 80MG
     Route: 048
     Dates: start: 20190509, end: 20190516

REACTIONS (15)
  - Blood pressure increased [Unknown]
  - Nausea [Not Recovered/Not Resolved]
  - Blood urine present [Recovering/Resolving]
  - Colorectal cancer [Not Recovered/Not Resolved]
  - Haemorrhage urinary tract [Not Recovered/Not Resolved]
  - Metastases to liver [None]
  - Metastases to lymph nodes [None]
  - Faeces soft [Not Recovered/Not Resolved]
  - White blood cells urine positive [None]
  - Fatigue [Not Recovered/Not Resolved]
  - Drug ineffective [None]
  - Febrile neutropenia [None]
  - Dysphonia [Not Recovered/Not Resolved]
  - Gingival bleeding [Unknown]
  - Epistaxis [Not Recovered/Not Resolved]

NARRATIVE: CASE EVENT DATE: 201905
